FAERS Safety Report 8067470-1 (Version None)
Quarter: 2012Q1

REPORT INFORMATION
  Report Type: 
  Country: None (occurrence: None)
  Receive Date: 20120124
  Receipt Date: 20111010
  Transmission Date: 20120608
  Serious: Yes (Hospitalization, Other)
  Sender: FDA-Public Use
  Company Number: PHHY2011US91322

PATIENT
  Age: 36 Year
  Sex: Male

DRUGS (3)
  1. FUROSEMIDE [Concomitant]
     Dosage: UNK UKN, UNK
  2. LISINOPRIL [Concomitant]
     Dosage: UNK UKN, UNK
  3. CARVEDILOL [Suspect]
     Dosage: UNK UKN, UNK

REACTIONS (5)
  - BLOOD GLUCOSE ABNORMAL [None]
  - HYPOKALAEMIA [None]
  - CARDIOGENIC SHOCK [None]
  - TOXICITY TO VARIOUS AGENTS [None]
  - BLOOD PRESSURE DECREASED [None]
